FAERS Safety Report 9022533 (Version 1)
Quarter: 2013Q1

REPORT INFORMATION
  Report Type: Spontaneous
  Country: US (occurrence: US)
  Receive Date: 20130118
  Receipt Date: 20130118
  Transmission Date: 20140127
  Serious: No
  Sender: FDA-Public Use
  Company Number: US-GLAXOSMITHKLINE-A0960982A

PATIENT
  Sex: Female

DRUGS (8)
  1. PROMACTA [Suspect]
     Indication: IDIOPATHIC THROMBOCYTOPENIC PURPURA
     Dosage: 75MG PER DAY
     Route: 048
     Dates: start: 201111
  2. METFORMIN [Concomitant]
  3. TYLENOL [Concomitant]
  4. METOPROLOL [Concomitant]
  5. VITAMIN B12 [Concomitant]
  6. FOLIC ACID [Concomitant]
  7. PREDNISONE [Concomitant]
  8. LASIX [Concomitant]

REACTIONS (2)
  - Headache [Not Recovered/Not Resolved]
  - Back pain [Unknown]
